FAERS Safety Report 9106571 (Version 2)
Quarter: 2013Q2

REPORT INFORMATION
  Report Type: Spontaneous
  Country: US (occurrence: US)
  Receive Date: 20130221
  Receipt Date: 20130523
  Transmission Date: 20140414
  Serious: Yes (Other)
  Sender: FDA-Public Use
  Company Number: US-ELI_LILLY_AND_COMPANY-US201302004274

PATIENT
  Age: 45 Year
  Sex: Female
  Weight: 65.31 kg

DRUGS (10)
  1. STRATTERA [Suspect]
     Indication: ATTENTION DEFICIT/HYPERACTIVITY DISORDER
     Dosage: 18 MG, UNK
     Dates: start: 20120910
  2. STRATTERA [Suspect]
     Dosage: 25 MG, UNK
  3. STRATTERA [Suspect]
     Dosage: 40 MG, UNK
  4. STRATTERA [Suspect]
     Dosage: 80 MG, UNKNOWN
  5. STRATTERA [Suspect]
     Dosage: 100 MG, QD
     Route: 048
     Dates: end: 20130211
  6. STRATTERA [Suspect]
     Dosage: 80 MG, UNKNOWN
  7. CYMBALTA [Suspect]
     Indication: MAJOR DEPRESSION
     Dosage: 120 MG, QD
     Route: 048
     Dates: start: 20111003, end: 20130304
  8. VYVANSE [Concomitant]
     Dosage: 40 MG, QD
     Route: 048
  9. OMEGA 3 [Concomitant]
  10. ADDERALL [Concomitant]
     Indication: DISTURBANCE IN ATTENTION
     Dosage: 10 MG, PRN

REACTIONS (6)
  - Suicidal ideation [Recovered/Resolved]
  - Sexual dysfunction [Unknown]
  - Depression [Recovered/Resolved]
  - Crying [Recovered/Resolved]
  - Anhedonia [Recovered/Resolved]
  - Drug ineffective [Unknown]
